FAERS Safety Report 26185108 (Version 1)
Quarter: 2025Q4

REPORT INFORMATION
  Report Type: Spontaneous
  Country: US (occurrence: US)
  Receive Date: 20251222
  Receipt Date: 20251222
  Transmission Date: 20260117
  Serious: No
  Sender: LEO PHARM
  Company Number: US-LEO Pharma-385020

PATIENT
  Age: 41 Year
  Sex: Male

DRUGS (1)
  1. ADBRY [Suspect]
     Active Substance: TRALOKINUMAB-LDRM
     Indication: Dermatitis atopic
     Dosage: 600 MG SUBCUTANEOUS INJECTION (INJECT 2 AUTOINJECTORS, 300 MG EACH) ON DAY 1 (11/12/2025 ESTIMATED),
     Route: 058
     Dates: start: 20251112

REACTIONS (1)
  - Eczema [Unknown]
